FAERS Safety Report 7245143-2 (Version None)
Quarter: 2011Q1

REPORT INFORMATION
  Report Type: 
  Country: None (occurrence: None)
  Receive Date: 20110126
  Receipt Date: 20110120
  Transmission Date: 20110831
  Serious: Yes (Other)
  Sender: FDA-Public Use
  Company Number: US-B.I. PHARMACEUTICALS,INC./RIDGEFIELD-2011-BP-01480BP

PATIENT
  Sex: Female

DRUGS (2)
  1. SPIRIVA [Suspect]
     Dosage: 18 MCG
     Route: 055
     Dates: start: 20101116, end: 20101117
  2. SPIRIVA [Suspect]
     Indication: CHRONIC OBSTRUCTIVE PULMONARY DISEASE
     Dosage: 18 MCG
     Route: 055
     Dates: start: 20080101, end: 20080101

REACTIONS (9)
  - HYPERTENSION [None]
  - THYROID MASS [None]
  - DIZZINESS [None]
  - CHOKING [None]
  - VISION BLURRED [None]
  - ANXIETY [None]
  - BLOOD CHOLESTEROL INCREASED [None]
  - WHEEZING [None]
  - ASTHENIA [None]
